FAERS Safety Report 12431516 (Version 1)
Quarter: 2016Q2

REPORT INFORMATION
  Report Type: Spontaneous
  Country: ES (occurrence: ES)
  Receive Date: 20160603
  Receipt Date: 20160603
  Transmission Date: 20160815
  Serious: Yes (Other)
  Sender: FDA-Public Use
  Company Number: ES-AMGEN-ESPSP2016069903

PATIENT
  Age: 43 Year
  Sex: Female

DRUGS (2)
  1. ENBREL [Suspect]
     Active Substance: ETANERCEPT
     Indication: PSORIATIC ARTHROPATHY
     Dosage: 50 MG, TWICE WEEKLY DURING 12 WEEKS
     Route: 065
  2. ENBREL [Suspect]
     Active Substance: ETANERCEPT
     Indication: PSORIASIS
     Dosage: 50 MG, WEEKLY DURING 12 WEEKS
     Route: 065

REACTIONS (4)
  - Viral infection [Unknown]
  - Hepatic fibrosis [Unknown]
  - Viral load increased [Recovered/Resolved]
  - Drug ineffective [Recovered/Resolved]
